FAERS Safety Report 9498947 (Version 1)
Quarter: 2013Q3

REPORT INFORMATION
  Report Type: Spontaneous
  Country: NO (occurrence: NO)
  Receive Date: 20130904
  Receipt Date: 20130904
  Transmission Date: 20140515
  Serious: Yes (Other)
  Sender: FDA-Public Use
  Company Number: NO-TEVA-428939ISR

PATIENT
  Age: 8 Year
  Sex: Male

DRUGS (1)
  1. MONTELUKAST [Suspect]
     Route: 048

REACTIONS (7)
  - Loss of consciousness [Recovered/Resolved]
  - Anxiety [Recovered/Resolved]
  - Headache [Recovered/Resolved]
  - Paranoia [Recovered/Resolved]
  - Product substitution issue [Unknown]
  - Abdominal pain upper [Recovered/Resolved]
  - Stress [Recovered/Resolved]
